FAERS Safety Report 25264786 (Version 3)
Quarter: 2025Q2

REPORT INFORMATION
  Report Type: Spontaneous
  Country: US (occurrence: US)
  Receive Date: 20250502
  Receipt Date: 20250612
  Transmission Date: 20250716
  Serious: Yes (Death, Other)
  Sender: BIOVITRUM
  Company Number: US-BIOVITRUM-2025-US-006085

PATIENT
  Age: 34 Year
  Sex: Female

DRUGS (1)
  1. KINERET [Suspect]
     Active Substance: ANAKINRA
     Indication: Product used for unknown indication

REACTIONS (2)
  - Death [Fatal]
  - Drug ineffective [Unknown]
